FAERS Safety Report 15653467 (Version 1)
Quarter: 2018Q4

REPORT INFORMATION
  Report Type: Spontaneous
  Country: SE (occurrence: SE)
  Receive Date: 20181124
  Receipt Date: 20181124
  Transmission Date: 20190205
  Serious: Yes (Hospitalization)
  Sender: FDA-Public Use
  Company Number: SE-TEVA-2018-SE-977672

PATIENT
  Age: 66 Year
  Sex: Male

DRUGS (14)
  1. MIRTAZAPINE. [Suspect]
     Active Substance: MIRTAZAPINE
     Indication: PSYCHOTIC DISORDER
     Route: 048
     Dates: end: 20110222
  2. OMEPRAZOLE. [Suspect]
     Active Substance: OMEPRAZOLE
     Route: 048
  3. ALLOPURINOL. [Concomitant]
     Active Substance: ALLOPURINOL
  4. LAMICTAL [Concomitant]
     Active Substance: LAMOTRIGINE
  5. VENLAFAXINE [Suspect]
     Active Substance: VENLAFAXINE HYDROCHLORIDE
     Indication: PSYCHOTIC DISORDER
     Route: 048
     Dates: end: 20110222
  6. GLIBENKLAMID [Concomitant]
  7. THERALEN [Concomitant]
     Active Substance: TRIMEPRAZINE
  8. IKTORIVIL [Concomitant]
     Active Substance: CLONAZEPAM
  9. OXASCAND [Concomitant]
     Active Substance: OXAZEPAM
  10. ENALAPRIL [Suspect]
     Active Substance: ENALAPRIL
     Dosage: 15 MILLIGRAM DAILY;
     Route: 048
  11. SEROQUEL [Suspect]
     Active Substance: QUETIAPINE FUMARATE
     Indication: PSYCHOTIC DISORDER
     Dosage: 300 MILLIGRAM DAILY;
     Route: 048
  12. KETOGAN NOVUM [Concomitant]
  13. ZOPIKLON [Concomitant]
     Active Substance: ZOPICLONE
  14. TRIOBE [Concomitant]

REACTIONS (1)
  - Hyponatraemia [Unknown]

NARRATIVE: CASE EVENT DATE: 20110222
